FAERS Safety Report 7623485-6 (Version None)
Quarter: 2011Q3

REPORT INFORMATION
  Report Type: 
  Country: None (occurrence: None)
  Receive Date: 20110720
  Receipt Date: 20110712
  Transmission Date: 20111222
  Serious: Yes (Other)
  Sender: FDA-Public Use
  Company Number: PHHY2011CN63399

PATIENT

DRUGS (2)
  1. PREDNISONE [Suspect]
     Indication: GLOMERULONEPHRITIS MEMBRANOUS
     Dosage: 0.8-1 MG/KG PER DAY FOR 8 WEEKS AND REDUCED 5 MG EVERY 2 WEEKS TO 30 MG PER DAY
     Route: 048
  2. CYCLOPHOSPHAMIDE [Suspect]
     Indication: GLOMERULONEPHRITIS MEMBRANOUS
     Dosage: 500-750 MG/M2 MONTHLY
     Route: 042

REACTIONS (6)
  - HERPES ZOSTER [None]
  - PROSTATE CANCER [None]
  - NAUSEA [None]
  - LIVER DISORDER [None]
  - RESPIRATORY TRACT INFECTION [None]
  - DIABETES MELLITUS [None]
